FAERS Safety Report 13215195 (Version 1)
Quarter: 2017Q1

REPORT INFORMATION
  Report Type: Spontaneous
  Country: FR (occurrence: FR)
  Receive Date: 20170210
  Receipt Date: 20170210
  Transmission Date: 20170428
  Serious: Yes (Hospitalization)
  Sender: FDA-Public Use
  Company Number: FR-009507513-1702FRA003642

PATIENT
  Age: 41 Year
  Sex: Male

DRUGS (3)
  1. DIPROSONE [Suspect]
     Active Substance: BETAMETHASONE DIPROPIONATE
     Indication: PSORIASIS
     Dosage: QUANTUM SATIS FOR OCCLUSIVE DRESSING ONTO FEET, FOR 5 DAYS
     Route: 003
     Dates: start: 20170102, end: 20170109
  2. SUBUTEX [Concomitant]
     Active Substance: BUPRENORPHINE HYDROCHLORIDE
     Dosage: 2 MG, PER DAY; LONG TERM USE
     Route: 048
  3. DIPROSALIC [Suspect]
     Active Substance: BETAMETHASONE DIPROPIONATE
     Indication: PSORIASIS
     Dosage: QUANTUM SATIS FOR LOCAL APPLICATION AND PROGRESSIVE DECREASING DOSE
     Route: 003
     Dates: start: 20170102, end: 20170109

REACTIONS (1)
  - Erysipelas [Recovering/Resolving]

NARRATIVE: CASE EVENT DATE: 20170105
